FAERS Safety Report 6270801-6 (Version None)
Quarter: 2009Q3

REPORT INFORMATION
  Report Type: 
  Country: None (occurrence: None)
  Receive Date: 20090709
  Receipt Date: 20090702
  Transmission Date: 20100115
  Serious: Yes (Other)
  Sender: FDA-Public Use
  Company Number: 2009020400

PATIENT
  Age: 46 Year
  Sex: Female

DRUGS (1)
  1. VIVAGLOBIN [Suspect]
     Indication: HYPOGAMMAGLOBULINAEMIA
     Dosage: (50 ML, 50 ML WEEKLY SUBCUTANEOUS)
     Route: 058
     Dates: start: 20071201

REACTIONS (7)
  - BENIGN INTRACRANIAL HYPERTENSION [None]
  - CSF PRESSURE INCREASED [None]
  - DIPLOPIA [None]
  - HEADACHE [None]
  - HOOKWORM INFECTION [None]
  - UNEVALUABLE EVENT [None]
  - WHEEZING [None]
